FAERS Safety Report 12136784 (Version 2)
Quarter: 2016Q1

REPORT INFORMATION
  Report Type: Spontaneous
  Country: GB (occurrence: GB)
  Receive Date: 20160302
  Receipt Date: 20160307
  Transmission Date: 20160526
  Serious: Yes (Other)
  Sender: FDA-Public Use
  Company Number: GB-GLAXOSMITHKLINE-GB2016029644

PATIENT
  Sex: Male

DRUGS (7)
  1. LANSOPRAZOLE. [Concomitant]
     Active Substance: LANSOPRAZOLE
     Indication: GASTRITIS
     Dosage: DOSAGE FORM: UNSPECIFIED
     Route: 065
  2. SIMVASTATIN. [Concomitant]
     Active Substance: SIMVASTATIN
     Indication: BLOOD CHOLESTEROL
     Dosage: DOSAGE FORM: UNSPECIFIED
     Route: 065
  3. SALBUTAMOL [Concomitant]
     Active Substance: ALBUTEROL
     Indication: ASTHMA
     Dosage: DOSAGE FORM: SPRAY, YEARS AGO
     Route: 065
  4. FELODIPINE. [Concomitant]
     Active Substance: FELODIPINE
     Indication: BLOOD PRESSURE MEASUREMENT
     Dosage: DOSAGE FORM: UNSPECIFIED
     Route: 065
  5. NICOTINE. [Suspect]
     Active Substance: NICOTINE
     Indication: SMOKING CESSATION THERAPY
     Dosage: 4 MG, UNK
     Route: 065
  6. DOTHIEPIN HYDROCHLORIDE [Concomitant]
     Active Substance: DOTHIEPIN HYDROCHLORIDE
     Indication: DEPRESSION
     Dosage: DOSAGE FORM: UNSPECIFIED
     Route: 065
  7. NICORETTE QUICKMIST [Suspect]
     Active Substance: NICOTINE
     Indication: SMOKING CESSATION THERAPY
     Dosage: DOSAGE FORM: SPRAY, USED FOR ONE AND A HALF MONTH
     Route: 065

REACTIONS (5)
  - Overdose [Unknown]
  - Tobacco poisoning [Unknown]
  - Malaise [Unknown]
  - Eye disorder [Unknown]
  - Nausea [Unknown]
